FAERS Safety Report 15645523 (Version 3)
Quarter: 2018Q4

REPORT INFORMATION
  Report Type: Spontaneous
  Country: JP (occurrence: JP)
  Receive Date: 20181121
  Receipt Date: 20181204
  Transmission Date: 20190205
  Serious: Yes (Death, Other)
  Sender: FDA-Public Use
  Company Number: JP-009507513-1811JPN001801J

PATIENT
  Age: 83 Year
  Sex: Female

DRUGS (1)
  1. KEYTRUDA [Suspect]
     Active Substance: PEMBROLIZUMAB
     Indication: TRANSITIONAL CELL CARCINOMA
     Dosage: 200 MILLIGRAM, Q3W
     Route: 041
     Dates: start: 20181015, end: 20181105

REACTIONS (1)
  - Death [Fatal]

NARRATIVE: CASE EVENT DATE: 20181112
